FAERS Safety Report 9742709 (Version 1)
Quarter: 2013Q4

REPORT INFORMATION
  Report Type: Spontaneous
  Country: US (occurrence: US)
  Receive Date: 20131210
  Receipt Date: 20131210
  Transmission Date: 20140711
  Serious: No
  Sender: FDA-Public Use
  Company Number: US-GILEAD-2009-0025799

PATIENT
  Sex: Male
  Weight: 83.91 kg

DRUGS (20)
  1. LETAIRIS [Suspect]
     Indication: PULMONARY ARTERIAL HYPERTENSION
     Route: 048
     Dates: start: 20091007
  2. FUROSEMIDE [Concomitant]
  3. JANUVIA [Concomitant]
  4. METOPROLOL [Concomitant]
  5. IPRATROPIUM [Concomitant]
  6. LIPITOR [Concomitant]
  7. ALLEGRA-D 12 HOUR [Concomitant]
  8. FINASTERIDE [Concomitant]
  9. SIMVASTATIN [Concomitant]
  10. FEXOFENADINE [Concomitant]
  11. GLYBURIDE [Concomitant]
  12. PREVACID [Concomitant]
  13. ALBUTEROL [Concomitant]
  14. FLOMAX [Concomitant]
  15. LEVOXYL [Concomitant]
  16. ZETIA [Concomitant]
  17. FISH OIL [Concomitant]
  18. DIGOXIN [Concomitant]
  19. POTASSIUM CHLORIDE [Concomitant]
  20. ASPIRIN [Concomitant]

REACTIONS (2)
  - Blood pressure decreased [Unknown]
  - No therapeutic response [Unknown]
